FAERS Safety Report 4372363-7 (Version None)
Quarter: 2004Q2

REPORT INFORMATION
  Report Type: 
  Country: None (occurrence: None)
  Receive Date: 20040602
  Receipt Date: 20040524
  Transmission Date: 20050107
  Serious: Yes (Hospitalization)
  Sender: FDA-Public Use
  Company Number: 2004215248FR

PATIENT
  Age: 95 Year
  Sex: Female

DRUGS (2)
  1. XANAX [Suspect]
     Dosage: 4 DF TWICE, ORAL
     Route: 048
  2. STILNOX (ZOLPIDEM) [Suspect]
     Dosage: 1 DF ONCE, ORAL
     Route: 048

REACTIONS (3)
  - BALANCE DISORDER [None]
  - DISORIENTATION [None]
  - FALL [None]
